FAERS Safety Report 11934603 (Version 1)
Quarter: 2016Q1

REPORT INFORMATION
  Report Type: Spontaneous
  Country: CA (occurrence: CA)
  Receive Date: 20160121
  Receipt Date: 20160121
  Transmission Date: 20160526
  Serious: Yes (Life-Threatening, Hospitalization, Other)
  Sender: FDA-Public Use
  Company Number: CA-TEVA-627224ACC

PATIENT
  Age: 45 Year
  Sex: Male
  Weight: 89 kg

DRUGS (4)
  1. CALCIUM [Concomitant]
     Active Substance: CALCIUM
  2. REPLAVITE [Concomitant]
  3. BACLOFEN. [Suspect]
     Active Substance: BACLOFEN
     Indication: BACK PAIN
     Dosage: 30 MILLIGRAM DAILY;
     Route: 048
  4. SEVELAMER [Concomitant]
     Active Substance: SEVELAMER

REACTIONS (5)
  - Catatonia [Recovered/Resolved]
  - Disorientation [Recovered/Resolved]
  - Disturbance in attention [Recovered/Resolved]
  - Chronic kidney disease [Recovered/Resolved]
  - Status epilepticus [Recovered/Resolved]
